FAERS Safety Report 19838565 (Version 2)
Quarter: 2021Q3

REPORT INFORMATION
  Report Type: Report from Study
  Country: CO (occurrence: CO)
  Receive Date: 20210916
  Receipt Date: 20210927
  Transmission Date: 20211014
  Serious: Yes (Death, Hospitalization, Other)
  Sender: FDA-Public Use
  Company Number: NVSC2021CO206602

PATIENT
  Age: 60 Year
  Sex: Female

DRUGS (1)
  1. REVOLADE [Suspect]
     Active Substance: ELTROMBOPAG OLAMINE
     Indication: IMMUNE THROMBOCYTOPENIA
     Dosage: 75 MG, Q24H (APPROXIMATELY ONE MONTH AGO)
     Route: 048

REACTIONS (9)
  - Respiratory arrest [Fatal]
  - Respiratory failure [Unknown]
  - Renal failure [Unknown]
  - Weight increased [Unknown]
  - Platelet count decreased [Unknown]
  - Thrombosis [Unknown]
  - Urinary tract infection [Unknown]
  - Urine output decreased [Unknown]
  - Fluid retention [Unknown]

NARRATIVE: CASE EVENT DATE: 202108
